FAERS Safety Report 13122899 (Version 1)
Quarter: 2017Q1

REPORT INFORMATION
  Report Type: Spontaneous
  Country: CN (occurrence: CN)
  Receive Date: 20170117
  Receipt Date: 20170117
  Transmission Date: 20170428
  Serious: Yes (Other)
  Sender: FDA-Public Use
  Company Number: CN-PFIZER INC-2017018508

PATIENT
  Age: 79 Year
  Sex: Female
  Weight: 51 kg

DRUGS (2)
  1. LIPITOR [Suspect]
     Active Substance: ATORVASTATIN CALCIUM
     Indication: LIPIDS ABNORMAL
     Dosage: 20 MG, 1X/DAY
     Route: 048
     Dates: start: 20151016, end: 20151026
  2. VINPOCETINE [Suspect]
     Active Substance: VINPOCETINE
     Indication: CARDIOVASCULAR DISORDER
     Dosage: 30 MG, 1X/DAY
     Route: 041
     Dates: start: 20151016, end: 20151026

REACTIONS (6)
  - Biliary dilatation [Unknown]
  - Blood test abnormal [Unknown]
  - Biliary tract infection [Unknown]
  - Hepatic enzyme increased [Recovering/Resolving]
  - Nausea [Unknown]
  - Vomiting [Unknown]

NARRATIVE: CASE EVENT DATE: 20151026
